FAERS Safety Report 7609400-X (Version None)
Quarter: 2011Q3

REPORT INFORMATION
  Report Type: 
  Country: None (occurrence: None)
  Receive Date: 20110713
  Receipt Date: 20110713
  Transmission Date: 20111222
  Serious: No
  Sender: FDA-Public Use
  Company Number: None

PATIENT
  Sex: Female
  Weight: 66.4 kg

DRUGS (8)
  1. METFORMIN HCL [Concomitant]
  2. JANUVIA [Concomitant]
  3. SYNTHROID [Concomitant]
  4. TOVIAZ [Concomitant]
  5. OMEPRAZOLE [Concomitant]
  6. LIPITOR [Suspect]
     Indication: HYPERLIPIDAEMIA
     Dosage: 40MG 1 DAY PO
     Route: 048
     Dates: start: 20101119, end: 20110506
  7. LIPITOR [Suspect]
     Indication: DIABETES MELLITUS
     Dosage: 40MG 1 DAY PO
     Route: 048
     Dates: start: 20101119, end: 20110506
  8. ESTRADIOL [Concomitant]

REACTIONS (7)
  - VOMITING [None]
  - MALAISE [None]
  - LABORATORY TEST ABNORMAL [None]
  - NAUSEA [None]
  - JAUNDICE [None]
  - ABDOMINAL PAIN [None]
  - WEIGHT DECREASED [None]
